FAERS Safety Report 12263250 (Version 1)
Quarter: 2016Q2

REPORT INFORMATION
  Report Type: Spontaneous
  Country: DZ (occurrence: DZ)
  Receive Date: 20160413
  Receipt Date: 20160413
  Transmission Date: 20160815
  Serious: Yes (Other)
  Sender: FDA-Public Use
  Company Number: DZ-JNJFOC-20160406554

PATIENT
  Sex: Male

DRUGS (1)
  1. ZYTIGA [Suspect]
     Active Substance: ABIRATERONE ACETATE
     Indication: PROSTATE CANCER METASTATIC
     Route: 048
     Dates: start: 201512

REACTIONS (4)
  - Hyponatraemia [Recovered/Resolved]
  - Asthenia [Unknown]
  - General physical health deterioration [Unknown]
  - Hallucination [Unknown]

NARRATIVE: CASE EVENT DATE: 201602
